FAERS Safety Report 13851620 (Version 1)
Quarter: 2017Q3

REPORT INFORMATION
  Report Type: Spontaneous
  Country: US (occurrence: US)
  Receive Date: 20170810
  Receipt Date: 20170810
  Transmission Date: 20171127
  Serious: No
  Sender: FDA-Public Use
  Company Number: US-ASTRAZENECA-2017SE80410

PATIENT
  Age: 27255 Day
  Sex: Male
  Weight: 79.4 kg

DRUGS (3)
  1. OMEPRAZOLE. [Suspect]
     Active Substance: OMEPRAZOLE
     Indication: DYSPEPSIA
     Route: 048
  2. OMEPRAZOLE. [Suspect]
     Active Substance: OMEPRAZOLE
     Indication: GASTROOESOPHAGEAL REFLUX DISEASE
     Route: 048
  3. LEVOTHYROXINE. [Concomitant]
     Active Substance: LEVOTHYROXINE
     Indication: THYROID DISORDER
     Route: 048

REACTIONS (10)
  - Chest pain [Unknown]
  - Fatigue [Unknown]
  - Vitamin D decreased [Unknown]
  - Inflammation [Unknown]
  - Fall [Unknown]
  - Pericardial effusion [Unknown]
  - Intentional product use issue [Unknown]
  - Decreased appetite [Unknown]
  - Cough [Unknown]
  - Iron deficiency [Unknown]

NARRATIVE: CASE EVENT DATE: 20170719
